FAERS Safety Report 17744999 (Version 1)
Quarter: 2020Q2

REPORT INFORMATION
  Report Type: Spontaneous
  Country: GB (occurrence: GB)
  Receive Date: 20200505
  Receipt Date: 20200505
  Transmission Date: 20200714
  Serious: Yes (Other)
  Sender: FDA-Public Use
  Company Number: GB-SA-2020SA113327

PATIENT
  Age: 31 Year
  Sex: Male
  Weight: 91 kg

DRUGS (1)
  1. FEXOFENADINE HYDROCHLORIDE. [Suspect]
     Active Substance: FEXOFENADINE HYDROCHLORIDE
     Indication: SEASONAL ALLERGY
     Dosage: 180 MG, QD
     Route: 048
     Dates: start: 20200407, end: 20200414

REACTIONS (2)
  - Anxiety [Recovering/Resolving]
  - Palpitations [Recovering/Resolving]

NARRATIVE: CASE EVENT DATE: 20200407
